FAERS Safety Report 11217776 (Version 1)
Quarter: 2015Q2

REPORT INFORMATION
  Report Type: Spontaneous
  Country: JP (occurrence: JP)
  Receive Date: 20150625
  Receipt Date: 20150625
  Transmission Date: 20150821
  Serious: Yes (Other)
  Sender: FDA-Public Use
  Company Number: JP-SA-2015SA088428

PATIENT
  Sex: Female

DRUGS (1)
  1. ALLEGRA [Suspect]
     Active Substance: FEXOFENADINE HYDROCHLORIDE
     Indication: SEASONAL ALLERGY
     Route: 048

REACTIONS (4)
  - Dizziness [Recovering/Resolving]
  - Mental impairment [Recovering/Resolving]
  - Vision blurred [Recovering/Resolving]
  - Feeling abnormal [Recovering/Resolving]

NARRATIVE: CASE EVENT DATE: 20150615
